FAERS Safety Report 13621179 (Version 2)
Quarter: 2018Q1

REPORT INFORMATION
  Report Type: Report from Study
  Country: AT (occurrence: AT)
  Receive Date: 20170607
  Receipt Date: 20180102
  Transmission Date: 20180508
  Serious: Yes (Hospitalization, Other)
  Sender: FDA-Public Use
  Company Number: AT-ALLERGAN-1704103US

PATIENT
  Age: 29 Year
  Sex: Female
  Weight: 100 kg

DRUGS (149)
  1. ZYPREXA [Suspect]
     Active Substance: OLANZAPINE
     Indication: BIPOLAR DISORDER
     Dosage: 20 MG, QD
     Route: 065
     Dates: start: 20151215, end: 20151215
  2. ZYPREXA [Suspect]
     Active Substance: OLANZAPINE
     Dosage: 10 MG, QD
     Route: 065
     Dates: start: 20151204, end: 20151204
  3. ZYPREXA [Suspect]
     Active Substance: OLANZAPINE
     Dosage: 20 MG, QD
     Route: 065
     Dates: start: 20151116, end: 20151121
  4. ZELDOX [Suspect]
     Active Substance: ZIPRASIDONE
     Dosage: 20 MG, QD
     Route: 065
     Dates: start: 20151117, end: 20151117
  5. QUILONORM RETARD [Suspect]
     Active Substance: LITHIUM CARBONATE
     Dosage: 900 MG, QD
     Route: 065
     Dates: start: 20151125, end: 20151201
  6. ABILIFY [Suspect]
     Active Substance: ARIPIPRAZOLE
     Dosage: 7.5 MG, QD
     Route: 065
     Dates: start: 20151112, end: 20151115
  7. TOPIRAMAT [Concomitant]
     Active Substance: TOPIRAMATE
     Indication: PRODUCT USED FOR UNKNOWN INDICATION
     Dosage: 250 MG, QD
     Route: 065
     Dates: start: 20160111, end: 20160113
  8. LAMICTAL [Concomitant]
     Active Substance: LAMOTRIGINE
     Dosage: 100 MG, QD
     Route: 065
     Dates: start: 20151109, end: 20151122
  9. LEPONEX [Concomitant]
     Active Substance: CLOZAPINE
     Dosage: 150 MG, QD
     Route: 065
     Dates: start: 20151228, end: 20160119
  10. RIVOTRIL [Concomitant]
     Active Substance: CLONAZEPAM
     Dosage: UNK
  11. DOMINAL (PROTHIPENDYL HYDROCHLORIDE) [Concomitant]
     Active Substance: PROTHIPENDYL HYDROCHLORIDE
     Dosage: 80 MG, QD
     Route: 065
     Dates: start: 20151115, end: 20151116
  12. NEUROTOP RETARD [Concomitant]
     Active Substance: CARBAMAZEPINE
     Dosage: 600 MG, QD
     Route: 065
     Dates: start: 20151123, end: 20151125
  13. TEMESTA (LORAZEPAM) [Concomitant]
     Active Substance: LORAZEPAM
     Dosage: 10 MG, QD
     Route: 065
     Dates: start: 20151203, end: 20151206
  14. TEMESTA (LORAZEPAM) [Concomitant]
     Active Substance: LORAZEPAM
     Dosage: 4 MG, QD
     Route: 065
     Dates: start: 20151201, end: 20151201
  15. TEMESTA (LORAZEPAM) [Concomitant]
     Active Substance: LORAZEPAM
     Dosage: 5.5 MG, QD
     Route: 065
     Dates: start: 20151125, end: 20151125
  16. TEMESTA (LORAZEPAM) [Concomitant]
     Active Substance: LORAZEPAM
     Dosage: 5.5 MG, QD
     Route: 065
     Dates: start: 20151122, end: 20151122
  17. NOZINAN [Concomitant]
     Active Substance: LEVOMEPROMAZINE
     Dosage: 50 MG, QD
     Route: 065
     Dates: start: 20151129, end: 20151130
  18. INDERAL [Concomitant]
     Active Substance: PROPRANOLOL HYDROCHLORIDE
     Dosage: 50 MG, QD
     Route: 065
     Dates: start: 20151211, end: 20151211
  19. SYCREST [Suspect]
     Active Substance: ASENAPINE MALEATE
     Dosage: 15 MG, QD
     Route: 065
     Dates: start: 20151221, end: 20151230
  20. SYCREST [Suspect]
     Active Substance: ASENAPINE MALEATE
     Dosage: 20 MG, QD
     Route: 065
     Dates: start: 20151216, end: 20151220
  21. SYCREST [Suspect]
     Active Substance: ASENAPINE MALEATE
     Dosage: 5 MG, QD
     Route: 065
     Dates: start: 20151210, end: 20151211
  22. ZYPREXA [Suspect]
     Active Substance: OLANZAPINE
     Dosage: 30 MG, QD
     Route: 065
     Dates: start: 20151110, end: 20151115
  23. TOPIRAMAT [Concomitant]
     Active Substance: TOPIRAMATE
     Dosage: 175 MG, QD
     Route: 065
     Dates: start: 20160107, end: 20160107
  24. DEPAKINE CR [Concomitant]
     Active Substance: VALPROATE SODIUM
     Dosage: 1000 MG, QD
     Route: 065
     Dates: start: 20160112, end: 20160113
  25. LAMICTAL [Concomitant]
     Active Substance: LAMOTRIGINE
     Indication: PRODUCT USED FOR UNKNOWN INDICATION
     Dosage: 300 MG, QD
     Route: 065
     Dates: start: 20151215
  26. RIVOTRIL [Concomitant]
     Active Substance: CLONAZEPAM
     Dosage: UNK
     Route: 065
     Dates: start: 20151106, end: 20151106
  27. RIVOTRIL [Concomitant]
     Active Substance: CLONAZEPAM
     Dosage: UNK
     Route: 065
     Dates: start: 20151104, end: 20151105
  28. RISPERDAL [Concomitant]
     Active Substance: RISPERIDONE
     Indication: PRODUCT USED FOR UNKNOWN INDICATION
     Dosage: 1 MG, QD
     Route: 065
     Dates: start: 20151106, end: 20151106
  29. TEMESTA (LORAZEPAM) [Concomitant]
     Active Substance: LORAZEPAM
     Dosage: 4 MG, QD
     Route: 065
     Dates: start: 20151121, end: 20151121
  30. TEMESTA (LORAZEPAM) [Concomitant]
     Active Substance: LORAZEPAM
     Dosage: 8 MG, QD
     Route: 065
     Dates: start: 20151118, end: 20151119
  31. TRUXAL [Concomitant]
     Active Substance: CHLORPROTHIXENE
     Indication: PRODUCT USED FOR UNKNOWN INDICATION
     Dosage: 50 MG, QD
     Route: 065
     Dates: start: 20151105, end: 20151105
  32. STERIMAR NOSE SPRAY [Concomitant]
     Indication: PRODUCT USED FOR UNKNOWN INDICATION
     Dosage: UNK
     Route: 045
     Dates: start: 20160103, end: 20160115
  33. SIFROL [Concomitant]
     Active Substance: PRAMIPEXOLE
     Dosage: UNK
     Route: 065
     Dates: start: 20151203, end: 20151206
  34. AKINETON [Concomitant]
     Active Substance: BIPERIDEN HYDROCHLORIDE
     Dosage: 4 MG, QD
     Route: 065
     Dates: start: 20151120, end: 20151120
  35. NUBAIN [Concomitant]
     Active Substance: NALBUPHINE HYDROCHLORIDE
     Indication: PRODUCT USED FOR UNKNOWN INDICATION
     Dosage: 1 DF, QD
     Route: 065
     Dates: start: 20151204, end: 20151206
  36. SYCREST [Suspect]
     Active Substance: ASENAPINE MALEATE
     Dosage: 10 MG, QD
     Route: 065
     Dates: start: 20151212, end: 20151214
  37. TRITTICO RETARD [Suspect]
     Active Substance: TRAZODONE HYDROCHLORIDE
     Dosage: 150, QD
     Route: 065
     Dates: start: 20151107, end: 20151107
  38. ZYPREXA [Suspect]
     Active Substance: OLANZAPINE
     Dosage: 20 MG, QD
     Route: 065
     Dates: start: 20151203, end: 20151203
  39. ZYPREXA [Suspect]
     Active Substance: OLANZAPINE
     Dosage: 30 MG, QD
     Route: 065
     Dates: start: 20151122, end: 20151202
  40. ZELDOX [Suspect]
     Active Substance: ZIPRASIDONE
     Indication: PRODUCT USED FOR UNKNOWN INDICATION
     Dosage: 120 MG, QD
     Route: 065
     Dates: start: 20151120, end: 20151121
  41. TOPIRAMAT [Concomitant]
     Active Substance: TOPIRAMATE
     Dosage: 200 MG, QD
     Route: 065
     Dates: start: 20160108, end: 20160110
  42. TOPIRAMAT [Concomitant]
     Active Substance: TOPIRAMATE
     Dosage: 75 MG, QD
     Route: 065
     Dates: start: 20151229, end: 20151230
  43. LAMICTAL [Concomitant]
     Active Substance: LAMOTRIGINE
     Dosage: 50 MG, QD
     Route: 065
     Dates: start: 201506, end: 20151104
  44. RIVOTRIL [Concomitant]
     Active Substance: CLONAZEPAM
     Dosage: UNK
     Route: 065
     Dates: start: 20151215, end: 20151226
  45. TEMESTA (LORAZEPAM) [Concomitant]
     Active Substance: LORAZEPAM
     Dosage: 7.5 MG, QD
     Route: 065
     Dates: start: 20151202, end: 20151202
  46. TEMESTA (LORAZEPAM) [Concomitant]
     Active Substance: LORAZEPAM
     Dosage: 4.5 MG, QD
     Route: 065
     Dates: start: 20151129, end: 20151130
  47. TEMESTA (LORAZEPAM) [Concomitant]
     Active Substance: LORAZEPAM
     Dosage: 3.25 MG, QD
     Route: 065
     Dates: start: 20151114, end: 20151115
  48. TEMESTA (LORAZEPAM) [Concomitant]
     Active Substance: LORAZEPAM
     Dosage: 3.75 MG, QD
     Route: 065
     Dates: start: 20151112, end: 20151112
  49. GASTROZEPIN [Concomitant]
     Active Substance: PIRENZEPINE HYDROCHLORIDE
     Indication: PRODUCT USED FOR UNKNOWN INDICATION
     Dosage: 150 MG, QD
     Route: 065
     Dates: start: 20151222, end: 20160118
  50. NOZINAN [Concomitant]
     Active Substance: LEVOMEPROMAZINE
     Dosage: 100 MG, QD
     Route: 065
     Dates: start: 20151123, end: 20151123
  51. NOZINAN [Concomitant]
     Active Substance: LEVOMEPROMAZINE
     Dosage: 25 MG, QD
     Route: 065
     Dates: start: 20151122, end: 20151122
  52. INDERAL [Concomitant]
     Active Substance: PROPRANOLOL HYDROCHLORIDE
     Dosage: 40 MG, QD
     Route: 065
     Dates: start: 20151212, end: 20151212
  53. ADASUVE [Concomitant]
     Active Substance: LOXAPINE
     Indication: PRODUCT USED FOR UNKNOWN INDICATION
     Dosage: 1 DF, QD
     Route: 065
     Dates: start: 20160112, end: 20160112
  54. TRITTICO RETARD [Suspect]
     Active Substance: TRAZODONE HYDROCHLORIDE
     Indication: BIPOLAR DISORDER
     Dosage: 100, QD
     Route: 065
     Dates: start: 20160119
  55. ZYPREXA [Suspect]
     Active Substance: OLANZAPINE
     Dosage: 25 MG, QD
     Route: 065
     Dates: start: 20151109, end: 20151109
  56. ZYPREXA [Suspect]
     Active Substance: OLANZAPINE
     Dosage: 20 MG, QD
     Route: 065
     Dates: start: 20151108, end: 20151108
  57. QUILONORM RETARD [Suspect]
     Active Substance: LITHIUM CARBONATE
     Indication: PRODUCT USED FOR UNKNOWN INDICATION
     Dosage: 450 MG, QD
     Route: 065
     Dates: start: 20151216, end: 20151217
  58. ABILIFY [Suspect]
     Active Substance: ARIPIPRAZOLE
     Dosage: 5 MG, QD
     Route: 065
     Dates: start: 20151107, end: 20151111
  59. TOPIRAMAT [Concomitant]
     Active Substance: TOPIRAMATE
     Dosage: 125 MG, QD
     Route: 065
     Dates: start: 20160105, end: 20160106
  60. LAMICTAL [Concomitant]
     Active Substance: LAMOTRIGINE
     Dosage: 250 MG, QD
     Route: 065
     Dates: start: 20151214, end: 20151214
  61. RIVOTRIL [Concomitant]
     Active Substance: CLONAZEPAM
     Dosage: UNK
     Route: 065
     Dates: start: 20160119, end: 20160119
  62. RIVOTRIL [Concomitant]
     Active Substance: CLONAZEPAM
     Dosage: UNK
     Route: 065
     Dates: start: 20160104, end: 20160105
  63. DOMINAL (PROTHIPENDYL HYDROCHLORIDE) [Concomitant]
     Active Substance: PROTHIPENDYL HYDROCHLORIDE
     Indication: PRODUCT USED FOR UNKNOWN INDICATION
     Dosage: 160 MG, QD
     Route: 065
     Dates: start: 20151117, end: 20151121
  64. NEUROTOP RETARD [Concomitant]
     Active Substance: CARBAMAZEPINE
     Dosage: UNK
     Route: 065
     Dates: start: 20151109, end: 20151110
  65. RISPERDAL [Concomitant]
     Active Substance: RISPERIDONE
     Dosage: 2 MG, QD
     Route: 065
     Dates: start: 20151105, end: 20151105
  66. TEMESTA (LORAZEPAM) [Concomitant]
     Active Substance: LORAZEPAM
     Dosage: 3.75 MG, QD
     Route: 065
     Dates: start: 20151215, end: 20151222
  67. TEMESTA (LORAZEPAM) [Concomitant]
     Active Substance: LORAZEPAM
     Dosage: 3.75 MG, QD
     Route: 065
     Dates: start: 20151212, end: 20151212
  68. TEMESTA (LORAZEPAM) [Concomitant]
     Active Substance: LORAZEPAM
     Dosage: 4.5 MG, QD
     Route: 065
     Dates: start: 20151126, end: 20151127
  69. TEMESTA (LORAZEPAM) [Concomitant]
     Active Substance: LORAZEPAM
     Dosage: 8 MG, QD
     Route: 065
     Dates: start: 20151124, end: 20151124
  70. TEMESTA (LORAZEPAM) [Concomitant]
     Active Substance: LORAZEPAM
     Dosage: 3 MG, QD
     Route: 065
     Dates: start: 20151123, end: 20151123
  71. LAEVOLAC [Concomitant]
     Active Substance: LACTULOSE
     Indication: PRODUCT USED FOR UNKNOWN INDICATION
     Dosage: 3 DF, QD
     Route: 065
     Dates: start: 20160118, end: 20160118
  72. INDERAL [Concomitant]
     Active Substance: PROPRANOLOL HYDROCHLORIDE
     Dosage: 30 MG, QD
     Route: 065
     Dates: start: 20151124, end: 20151125
  73. ZELDOX [Suspect]
     Active Substance: ZIPRASIDONE
     Dosage: 80 MG, QD
     Route: 065
     Dates: start: 20151119, end: 20151119
  74. ZELDOX [Suspect]
     Active Substance: ZIPRASIDONE
     Dosage: 40 MG, QD
     Route: 065
     Dates: start: 20151118, end: 20151118
  75. QUILONORM RETARD [Suspect]
     Active Substance: LITHIUM CARBONATE
     Dosage: 450 MG, QD
     Route: 065
     Dates: start: 20151123, end: 20151124
  76. TOPIRAMAT [Concomitant]
     Active Substance: TOPIRAMATE
     Dosage: 100 MG, QD
     Route: 065
     Dates: start: 20151231, end: 20160104
  77. LEPONEX [Concomitant]
     Active Substance: CLOZAPINE
     Dosage: 100 MG, QD
     Route: 065
     Dates: start: 20151227, end: 20151227
  78. LEPONEX [Concomitant]
     Active Substance: CLOZAPINE
     Dosage: 200 MG, QD
     Route: 065
     Dates: start: 20151218, end: 20151226
  79. DOMINAL (PROTHIPENDYL HYDROCHLORIDE) [Concomitant]
     Active Substance: PROTHIPENDYL HYDROCHLORIDE
     Dosage: 160 MG, QD
     Route: 065
     Dates: start: 20151105, end: 20151106
  80. TEMESTA (LORAZEPAM) [Concomitant]
     Active Substance: LORAZEPAM
     Dosage: 5 MG, QD
     Route: 065
     Dates: start: 20151213, end: 20151214
  81. TEMESTA (LORAZEPAM) [Concomitant]
     Active Substance: LORAZEPAM
     Dosage: 3 MG, QD
     Route: 065
     Dates: start: 20151120, end: 20151120
  82. TEMESTA (LORAZEPAM) [Concomitant]
     Active Substance: LORAZEPAM
     Dosage: 3 MG, QD
     Route: 065
     Dates: start: 20151116, end: 20151116
  83. TEMESTA (LORAZEPAM) [Concomitant]
     Active Substance: LORAZEPAM
     Dosage: 8.75 MG, QD
     Route: 065
     Dates: start: 20151107, end: 20151107
  84. TEMESTA (LORAZEPAM) [Concomitant]
     Active Substance: LORAZEPAM
     Dosage: 7.5 MG, QD
     Route: 065
     Dates: start: 20151106, end: 20151106
  85. GASTROZEPIN [Concomitant]
     Active Substance: PIRENZEPINE HYDROCHLORIDE
     Dosage: 100 MG, QD
     Route: 065
     Dates: start: 20151217, end: 20151221
  86. NOZINAN [Concomitant]
     Active Substance: LEVOMEPROMAZINE
     Indication: PRODUCT USED FOR UNKNOWN INDICATION
     Dosage: 50 MG, QD
     Route: 065
     Dates: start: 20151222, end: 20151222
  87. NOZINAN [Concomitant]
     Active Substance: LEVOMEPROMAZINE
     Dosage: 100 MG, QD
     Route: 065
     Dates: start: 20151112, end: 20151112
  88. NOZINAN [Concomitant]
     Active Substance: LEVOMEPROMAZINE
     Dosage: 150 MG, QD
     Route: 065
     Dates: start: 20151111, end: 20151111
  89. ZOLDEM [Concomitant]
     Active Substance: ZOLPIDEM TARTRATE
     Indication: PRODUCT USED FOR UNKNOWN INDICATION
     Dosage: 5 MG, QD
     Route: 065
     Dates: start: 20151109, end: 20151109
  90. INDERAL [Concomitant]
     Active Substance: PROPRANOLOL HYDROCHLORIDE
     Dosage: 30 MG, QD
     Route: 065
     Dates: start: 20151119, end: 20151121
  91. AKINETON [Concomitant]
     Active Substance: BIPERIDEN HYDROCHLORIDE
     Dosage: 2 MG, QD
     Route: 065
     Dates: start: 20151221, end: 20151221
  92. ESCITALOPRAM OXALATE UNK [Interacting]
     Active Substance: ESCITALOPRAM OXALATE
     Dosage: 5 MG, QD
     Dates: start: 20151112, end: 20151112
  93. SYCREST [Suspect]
     Active Substance: ASENAPINE MALEATE
     Indication: PRODUCT USED FOR UNKNOWN INDICATION
     Dosage: 5 MG, QD
     Route: 065
     Dates: start: 20160111, end: 20160112
  94. SYCREST [Suspect]
     Active Substance: ASENAPINE MALEATE
     Dosage: 15 MG, QD
     Route: 065
     Dates: start: 20151215, end: 20151215
  95. TRITTICO RETARD [Suspect]
     Active Substance: TRAZODONE HYDROCHLORIDE
     Dosage: 300, QD
     Route: 065
     Dates: start: 20151109, end: 20151202
  96. ABILIFY [Suspect]
     Active Substance: ARIPIPRAZOLE
     Indication: BIPOLAR DISORDER
     Dosage: 5 MG, QD
     Route: 065
     Dates: start: 20151117, end: 20151117
  97. ABILIFY [Suspect]
     Active Substance: ARIPIPRAZOLE
     Dosage: 10 MG, QD
     Route: 065
     Dates: start: 20151116, end: 20151116
  98. TOPIRAMAT [Concomitant]
     Active Substance: TOPIRAMATE
     Dosage: 50 MG, QD
     Route: 065
     Dates: start: 20151223, end: 20151228
  99. DEPAKINE CR [Concomitant]
     Active Substance: VALPROATE SODIUM
     Indication: PRODUCT USED FOR UNKNOWN INDICATION
     Dosage: 250 MG, QD
     Route: 065
     Dates: start: 20160114, end: 20160114
  100. DEPAKINE CR [Concomitant]
     Active Substance: VALPROATE SODIUM
     Dosage: 250 MG, QD
     Route: 065
     Dates: start: 20160107, end: 20160107
  101. LAMICTAL [Concomitant]
     Active Substance: LAMOTRIGINE
     Dosage: 75 MG, QD
     Route: 065
     Dates: start: 20151104, end: 20151108
  102. LEPONEX [Concomitant]
     Active Substance: CLOZAPINE
     Indication: PRODUCT USED FOR UNKNOWN INDICATION
     Dosage: 100 MG, QD
     Route: 065
     Dates: start: 20160120
  103. LEPONEX [Concomitant]
     Active Substance: CLOZAPINE
     Dosage: 100 MG, QD
     Route: 065
     Dates: start: 20151217, end: 20151217
  104. LEPONEX [Concomitant]
     Active Substance: CLOZAPINE
     Dosage: 100 MG, QD
     Route: 065
     Dates: start: 20151207, end: 20151213
  105. DOMINAL (PROTHIPENDYL HYDROCHLORIDE) [Concomitant]
     Active Substance: PROTHIPENDYL HYDROCHLORIDE
     Dosage: 120 MG, QD
     Route: 065
     Dates: end: 20151104
  106. NEUROTOP RETARD [Concomitant]
     Active Substance: CARBAMAZEPINE
     Indication: PRODUCT USED FOR UNKNOWN INDICATION
     Dosage: 300 MG, QD
     Route: 065
     Dates: start: 20151126, end: 20151130
  107. NEUROTOP RETARD [Concomitant]
     Active Substance: CARBAMAZEPINE
     Dosage: 900 MG, QD
     Route: 065
     Dates: start: 201510, end: 20151108
  108. TEMESTA (LORAZEPAM) [Concomitant]
     Active Substance: LORAZEPAM
     Dosage: 8.75 MG, QD
     Route: 065
     Dates: start: 20151207, end: 20151209
  109. TEMESTA (LORAZEPAM) [Concomitant]
     Active Substance: LORAZEPAM
     Dosage: 5.5 MG, QD
     Route: 065
     Dates: start: 20151117, end: 20151117
  110. TEMESTA (LORAZEPAM) [Concomitant]
     Active Substance: LORAZEPAM
     Dosage: 5 MG, QD
     Route: 065
     Dates: start: 20151113, end: 20151113
  111. TEMESTA (LORAZEPAM) [Concomitant]
     Active Substance: LORAZEPAM
     Dosage: 6.25 MG, QD
     Route: 065
     Dates: start: 20151108, end: 20151110
  112. LAEVOLAC [Concomitant]
     Active Substance: LACTULOSE
     Dosage: 4 DF, QD
     Route: 065
     Dates: start: 20160116, end: 20160117
  113. LAEVOLAC [Concomitant]
     Active Substance: LACTULOSE
     Dosage: 6 DF, QD
     Route: 065
     Dates: start: 20160115, end: 20160115
  114. INDERAL [Concomitant]
     Active Substance: PROPRANOLOL HYDROCHLORIDE
     Dosage: 40 MG, QD
     Route: 065
     Dates: start: 20151203, end: 20151207
  115. INDERAL [Concomitant]
     Active Substance: PROPRANOLOL HYDROCHLORIDE
     Dosage: 60 MG, QD
     Route: 065
     Dates: start: 20151202, end: 20151202
  116. AKINETON [Concomitant]
     Active Substance: BIPERIDEN HYDROCHLORIDE
     Dosage: 4 MG, QD
     Route: 065
     Dates: start: 20151222, end: 20151222
  117. ADASUVE [Concomitant]
     Active Substance: LOXAPINE
     Dosage: 1 DF, QD
     Route: 065
     Dates: start: 20151215, end: 20151215
  118. MUCOBENE [Concomitant]
     Indication: PRODUCT USED FOR UNKNOWN INDICATION
     Dosage: 600 MG, QD
     Route: 065
     Dates: start: 20160103, end: 20160110
  119. ESCITALOPRAM OXALATE UNK [Suspect]
     Active Substance: ESCITALOPRAM OXALATE
     Indication: BIPOLAR DISORDER
     Dosage: 10 MG, QD
     Dates: start: 20151113, end: 20151120
  120. ESCITALOPRAM OXALATE UNK [Interacting]
     Active Substance: ESCITALOPRAM OXALATE
     Dosage: 10 MG, QD
     Dates: start: 20151108, end: 20151109
  121. SYCREST [Suspect]
     Active Substance: ASENAPINE MALEATE
     Dosage: 10 MG, QD
     Route: 065
     Dates: start: 20151231, end: 20160110
  122. TRITTICO RETARD [Suspect]
     Active Substance: TRAZODONE HYDROCHLORIDE
     Dosage: 150, QD
     Route: 065
     Dates: start: 20151203, end: 20160118
  123. TRITTICO RETARD [Suspect]
     Active Substance: TRAZODONE HYDROCHLORIDE
     Dosage: 250, QD
     Route: 065
     Dates: start: 20151108, end: 20151108
  124. ZYPREXA [Suspect]
     Active Substance: OLANZAPINE
     Dosage: 10 MG, QD
     Route: 065
     Dates: start: 20151105, end: 20151106
  125. QUILONORM RETARD [Suspect]
     Active Substance: LITHIUM CARBONATE
     Dosage: 675 MG, QD
     Route: 065
     Dates: start: 20151204, end: 20151206
  126. RIVOTRIL [Concomitant]
     Active Substance: CLONAZEPAM
     Indication: PRODUCT USED FOR UNKNOWN INDICATION
     Dosage: 2 MG, QD
     Route: 065
     Dates: start: 20160120
  127. RIVOTRIL [Concomitant]
     Active Substance: CLONAZEPAM
     Dosage: UNK
     Route: 065
     Dates: start: 20151202, end: 20151202
  128. NEUROTOP RETARD [Concomitant]
     Active Substance: CARBAMAZEPINE
     Dosage: 900 MG, QD
     Route: 065
     Dates: start: 20151111, end: 20151122
  129. TEMESTA (LORAZEPAM) [Concomitant]
     Active Substance: LORAZEPAM
     Indication: PRODUCT USED FOR UNKNOWN INDICATION
     Dosage: 3 MG, QD
     Route: 065
     Dates: start: 20151223, end: 20151227
  130. TEMESTA (LORAZEPAM) [Concomitant]
     Active Substance: LORAZEPAM
     Dosage: 6.25 MG, QD
     Route: 065
     Dates: start: 20151210, end: 20151211
  131. PRAXITEN [Concomitant]
     Active Substance: OXAZEPAM
     Indication: PRODUCT USED FOR UNKNOWN INDICATION
     Dosage: 25 MG, QD
     Route: 065
     Dates: start: 20151127, end: 20151214
  132. INDERAL [Concomitant]
     Active Substance: PROPRANOLOL HYDROCHLORIDE
     Indication: PRODUCT USED FOR UNKNOWN INDICATION
     Dosage: 20 MG, QD
     Route: 065
     Dates: start: 20151215, end: 20151215
  133. INDERAL [Concomitant]
     Active Substance: PROPRANOLOL HYDROCHLORIDE
     Dosage: 30 MG, QD
     Route: 065
     Dates: start: 20151213, end: 20151214
  134. INDERAL [Concomitant]
     Active Substance: PROPRANOLOL HYDROCHLORIDE
     Dosage: 90 MG, QD
     Route: 065
     Dates: start: 20151208, end: 20151210
  135. AKINETON [Concomitant]
     Active Substance: BIPERIDEN HYDROCHLORIDE
     Dosage: 2 MG, QD
     Route: 065
     Dates: start: 20151202, end: 20151202
  136. FLUCTINE [Suspect]
     Active Substance: FLUOXETINE HYDROCHLORIDE
     Indication: PRODUCT USED FOR UNKNOWN INDICATION
     Dosage: 20 MG, QD
     Route: 065
     Dates: start: 20151122, end: 20151123
  137. ABILIFY [Suspect]
     Active Substance: ARIPIPRAZOLE
     Dosage: 2.5 MG, QD
     Route: 065
     Dates: start: 20151105, end: 20151106
  138. DEPAKINE CR [Concomitant]
     Active Substance: VALPROATE SODIUM
     Dosage: 750 MG, QD
     Route: 065
     Dates: start: 20160108, end: 20160111
  139. LAMICTAL [Concomitant]
     Active Substance: LAMOTRIGINE
     Dosage: 200 MG, QD
     Route: 065
     Dates: start: 20151123, end: 20151213
  140. RIVOTRIL [Concomitant]
     Active Substance: CLONAZEPAM
     Dosage: UNK
     Route: 065
     Dates: start: 20160105, end: 20160118
  141. RIVOTRIL [Concomitant]
     Active Substance: CLONAZEPAM
     Dosage: UNK
     Route: 065
     Dates: start: 20151227, end: 20160103
  142. RIVOTRIL [Concomitant]
     Active Substance: CLONAZEPAM
     Dosage: UNK
     Route: 065
     Dates: start: 20151203, end: 20151214
  143. DOMINAL (PROTHIPENDYL HYDROCHLORIDE) [Concomitant]
     Active Substance: PROTHIPENDYL HYDROCHLORIDE
     Dosage: 120 MG, QD
     Route: 065
     Dates: start: 201511, end: 201511
  144. TEMESTA (LORAZEPAM) [Concomitant]
     Active Substance: LORAZEPAM
     Dosage: 6.5 MG, QD
     Route: 065
     Dates: start: 20151128, end: 20151128
  145. TEMESTA (LORAZEPAM) [Concomitant]
     Active Substance: LORAZEPAM
     Dosage: 8.75 MG, QD
     Route: 065
     Dates: start: 20151111, end: 20151111
  146. DIBONDRIN [Concomitant]
     Active Substance: DIPHENHYDRAMINE HYDROCHLORIDE
     Indication: PRODUCT USED FOR UNKNOWN INDICATION
     Dosage: 50 MG, QD
     Route: 065
     Dates: start: 20151109, end: 20151109
  147. PRAXITEN [Concomitant]
     Active Substance: OXAZEPAM
     Dosage: 50 MG, QD
     Route: 065
     Dates: start: 20151120, end: 20151126
  148. SIFROL [Concomitant]
     Active Substance: PRAMIPEXOLE
     Indication: PRODUCT USED FOR UNKNOWN INDICATION
     Dosage: UNK
     Route: 065
     Dates: start: 20151207, end: 20151210
  149. AKINETON [Concomitant]
     Active Substance: BIPERIDEN HYDROCHLORIDE
     Indication: PRODUCT USED FOR UNKNOWN INDICATION
     Dosage: 2 MG, QD
     Route: 065
     Dates: start: 20151223, end: 20151223

REACTIONS (6)
  - Blood alkaline phosphatase increased [Recovered/Resolved]
  - Drug interaction [Unknown]
  - Off label use [Unknown]
  - Akathisia [Recovered/Resolved]
  - Gamma-glutamyltransferase increased [Recovered/Resolved]
  - Alanine aminotransferase increased [Recovered/Resolved]

NARRATIVE: CASE EVENT DATE: 20151105
